FAERS Safety Report 8639685 (Version 2)
Quarter: 2014Q1

REPORT INFORMATION
  Report Type: Spontaneous
  Country: US (occurrence: None)
  Receive Date: 20120323
  Receipt Date: 20130305
  Transmission Date: 20141002
  Serious: Yes (Other)
  Sender: FDA-Public Use
  Company Number: 163-21880-11091776

PATIENT
  Age: 81 Year
  Sex: Male

DRUGS (8)
  1. REVLIMID [Suspect]
     Indication: PLASMA CELL MYELOMA
     Dosage: 25 MG, 1 IN 1 D, PO
     Route: 048
     Dates: start: 201107
  2. HYDROCODONE-ACETAMINOPHEN (VICODIN) [Concomitant]
  3. NORCO (VICODIN) [Concomitant]
  4. LYRICA (PREGABALIN) [Concomitant]
  5. MELATONIN [Concomitant]
  6. DOCUSATE SODIUM [Concomitant]
  7. TAMSULOSIN HCL (TAMSULOSIN HYDROCHLORIDE) [Concomitant]
  8. OMEPRAZOLE MAGNESIUM [Concomitant]

REACTIONS (3)
  - Neutropenia [None]
  - Neuropathy peripheral [None]
  - Pancytopenia [None]
